FAERS Safety Report 10961973 (Version 1)
Quarter: 2015Q1

REPORT INFORMATION
  Report Type: Spontaneous
  Country: JP (occurrence: JP)
  Receive Date: 20150327
  Receipt Date: 20150327
  Transmission Date: 20150721
  Serious: Yes (Death, Life-Threatening, Hospitalization)
  Sender: FDA-Public Use
  Company Number: JP-PFIZER INC-2014149176

PATIENT
  Age: 64 Year
  Sex: Male

DRUGS (5)
  1. INLYTA [Suspect]
     Active Substance: AXITINIB
     Dosage: 3 MG, 2X/DAY
  2. INLYTA [Suspect]
     Active Substance: AXITINIB
     Dosage: 5 MG, 1X/DAY
  3. INLYTA [Suspect]
     Active Substance: AXITINIB
     Indication: METASTATIC RENAL CELL CARCINOMA
     Dosage: 5 MG, 2X/DAY
     Route: 048
     Dates: start: 20140417
  4. INLYTA [Suspect]
     Active Substance: AXITINIB
     Dosage: 2.5 MG, 1X/DAY
  5. INLYTA [Suspect]
     Active Substance: AXITINIB
     Dosage: 2 MG, UNK
     Route: 048
     Dates: end: 20140702

REACTIONS (11)
  - Dysphagia [Not Recovered/Not Resolved]
  - Respiratory failure [Unknown]
  - Decreased appetite [Not Recovered/Not Resolved]
  - Malaise [Not Recovered/Not Resolved]
  - Performance status decreased [Unknown]
  - Pleural effusion [Unknown]
  - Metastatic renal cell carcinoma [Fatal]
  - Oedema peripheral [Not Recovered/Not Resolved]
  - Dyspnoea [Unknown]
  - Disease progression [Fatal]
  - Malaise [Recovered/Resolved]
